FAERS Safety Report 7315499-0 (Version None)
Quarter: 2011Q1

REPORT INFORMATION
  Report Type: 
  Country: None (occurrence: None)
  Receive Date: 20110225
  Receipt Date: 20110222
  Transmission Date: 20110831
  Serious: Yes (Life-Threatening)
  Sender: FDA-Public Use
  Company Number: IT-ABBOTT-11P-083-0707154-00

PATIENT
  Age: 40 Year
  Sex: Female

DRUGS (4)
  1. DEPAKENE [Suspect]
     Indication: EPILEPSY
     Dosage: 500 MILLIGRAM(S) DAILY
     Route: 042
     Dates: start: 20101204, end: 20101225
  2. DEPAKENE [Suspect]
     Route: 042
     Dates: start: 20101227, end: 20101230
  3. ASPIRIN [Suspect]
     Indication: PRODUCT USED FOR UNKNOWN INDICATION
     Dosage: 100 MILLIGRAM(S) DAILY
     Route: 042
     Dates: start: 20101204, end: 20101230
  4. LEVOFLOXACIN [Concomitant]
     Indication: PRODUCT USED FOR UNKNOWN INDICATION
     Dates: start: 20101224, end: 20110101

REACTIONS (3)
  - TOXIC EPIDERMAL NECROLYSIS [None]
  - SKIN DISORDER [None]
  - ERYTHEMA [None]
